FAERS Safety Report 6338138-4 (Version None)
Quarter: 2009Q3

REPORT INFORMATION
  Report Type: 
  Country: None (occurrence: None)
  Receive Date: 20090902
  Receipt Date: 20090821
  Transmission Date: 20100115
  Serious: Yes (Hospitalization)
  Sender: FDA-Public Use
  Company Number: US-GENENTECH-288936

PATIENT
  Sex: Male

DRUGS (11)
  1. RANIBIZUMAB [Suspect]
     Indication: MACULAR DEGENERATION
     Dosage: UNK
     Route: 031
     Dates: start: 20081008
  2. VISUDYNE [Suspect]
     Indication: MACULAR DEGENERATION
     Dosage: UNK
     Route: 042
     Dates: start: 20081008
  3. CARBIDOPA [Concomitant]
     Indication: DRUG USE FOR UNKNOWN INDICATION
  4. ISOSORBIDE DINITRATE [Concomitant]
     Indication: DRUG USE FOR UNKNOWN INDICATION
  5. CLOPIDOGREL [Concomitant]
     Indication: DRUG USE FOR UNKNOWN INDICATION
  6. LOSARTAN POTASSIUM [Concomitant]
     Indication: DRUG USE FOR UNKNOWN INDICATION
  7. LISINOPRIL [Concomitant]
     Indication: DRUG USE FOR UNKNOWN INDICATION
  8. ATORVASTATIN CALCIUM [Concomitant]
     Indication: DRUG USE FOR UNKNOWN INDICATION
  9. HYDROCHLOROTHIAZIDE [Concomitant]
     Indication: DRUG USE FOR UNKNOWN INDICATION
  10. AMIODARONE [Concomitant]
     Indication: DRUG USE FOR UNKNOWN INDICATION
  11. GLYBURIDE [Concomitant]
     Indication: DRUG USE FOR UNKNOWN INDICATION

REACTIONS (3)
  - DIZZINESS [None]
  - FALL [None]
  - HYPOTENSION [None]
